FAERS Safety Report 16095699 (Version 1)
Quarter: 2019Q1

REPORT INFORMATION
  Report Type: Spontaneous
  Country: PL (occurrence: PL)
  Receive Date: 20190320
  Receipt Date: 20190320
  Transmission Date: 20190418
  Serious: Yes (Life-Threatening, Hospitalization, Other)
  Sender: FDA-Public Use
  Company Number: PL-JNJFOC-20190316372

PATIENT
  Age: 50 Year
  Sex: Male

DRUGS (1)
  1. IBRUTINIB [Suspect]
     Active Substance: IBRUTINIB
     Indication: CHRONIC LYMPHOCYTIC LEUKAEMIA
     Route: 048
     Dates: start: 20141107

REACTIONS (7)
  - Immunodeficiency [Recovering/Resolving]
  - Klebsiella infection [Recovering/Resolving]
  - Sepsis [Recovering/Resolving]
  - Respiratory failure [Recovering/Resolving]
  - Dyspnoea [Recovering/Resolving]
  - Streptococcal infection [Recovering/Resolving]
  - Systemic inflammatory response syndrome [Recovering/Resolving]

NARRATIVE: CASE EVENT DATE: 20141111
